FAERS Safety Report 10920595 (Version 2)
Quarter: 2015Q1

REPORT INFORMATION
  Report Type: Report from Study
  Country: CA (occurrence: CA)
  Receive Date: 20150317
  Receipt Date: 20150326
  Transmission Date: 20150721
  Serious: Yes (Hospitalization)
  Sender: FDA-Public Use
  Company Number: PHHY2015CA030341

PATIENT
  Age: 55 Year
  Sex: Male

DRUGS (2)
  1. CLOZARIL [Suspect]
     Active Substance: CLOZAPINE
     Indication: PRODUCT USED FOR UNKNOWN INDICATION
     Dosage: UNK
     Route: 048
     Dates: start: 20031029, end: 20150210
  2. CLOZARIL [Suspect]
     Active Substance: CLOZAPINE
     Dosage: 175 MG, QHS
     Route: 048

REACTIONS (2)
  - Tuberculosis [Unknown]
  - Malaise [Unknown]

NARRATIVE: CASE EVENT DATE: 20150210
